FAERS Safety Report 6278514-1 (Version None)
Quarter: 2009Q3

REPORT INFORMATION
  Report Type: 
  Country: None (occurrence: None)
  Receive Date: 20090721
  Receipt Date: 20090707
  Transmission Date: 20100115
  Serious: Yes (Hospitalization)
  Sender: FDA-Public Use
  Company Number: TRP_06136_2009

PATIENT
  Sex: Male
  Weight: 86.1834 kg

DRUGS (6)
  1. INFERGEN [Suspect]
     Indication: HEPATITIS C
     Dosage: 15 UG, QD SUBCUTANEOUS
     Route: 058
     Dates: start: 20090311, end: 20090601
  2. RIBAVIRIN [Suspect]
     Indication: HEPATITIS C
     Dosage: 1000 MG, [400 QAM AND 600 MG QPM] ORAL
     Route: 048
     Dates: start: 20090311, end: 20090601
  3. LISINOPRIL [Concomitant]
  4. METOCLOPRAMIDE [Concomitant]
  5. NOVOLOG [Concomitant]
  6. LANTUS [Concomitant]

REACTIONS (9)
  - ARTHRALGIA [None]
  - BACK PAIN [None]
  - FATIGUE [None]
  - HEPATITIS B ANTIBODY ABNORMAL [None]
  - INJECTION SITE ERYTHEMA [None]
  - INJECTION SITE RASH [None]
  - OEDEMA PERIPHERAL [None]
  - PYREXIA [None]
  - RASH [None]
